FAERS Safety Report 18098112 (Version 1)
Quarter: 2020Q3

REPORT INFORMATION
  Report Type: Spontaneous
  Country: US (occurrence: US)
  Receive Date: 20200730
  Receipt Date: 20200730
  Transmission Date: 20201103
  Serious: No
  Sender: FDA-Public Use
  Company Number: None

PATIENT
  Age: 49 Year
  Sex: Female

DRUGS (1)
  1. GAMMAPLEX [Suspect]
     Active Substance: HUMAN IMMUNOGLOBULIN G
     Indication: MYASTHENIA GRAVIS
     Route: 042
     Dates: start: 20200630

REACTIONS (7)
  - Tachycardia [None]
  - Fatigue [None]
  - Dizziness [None]
  - Infusion site pain [None]
  - Therapy interrupted [None]
  - Somnolence [None]
  - Infusion related reaction [None]

NARRATIVE: CASE EVENT DATE: 20200730
